FAERS Safety Report 9937654 (Version 2)
Quarter: 2014Q2

REPORT INFORMATION
  Report Type: Spontaneous
  Country: US (occurrence: US)
  Receive Date: 20140303
  Receipt Date: 20140423
  Transmission Date: 20141212
  Serious: No
  Sender: FDA-Public Use
  Company Number: US-BIOGENIDEC-2014BI014240

PATIENT
  Age: 60 Year
  Sex: Female

DRUGS (9)
  1. TECFIDERA [Suspect]
     Indication: MULTIPLE SCLEROSIS
     Route: 048
     Dates: start: 201311
  2. TECFIDERA [Suspect]
     Indication: MULTIPLE SCLEROSIS
     Route: 048
     Dates: start: 201401
  3. TECFIDERA [Suspect]
     Indication: MULTIPLE SCLEROSIS
     Dates: start: 201401
  4. TECFIDERA [Suspect]
     Indication: MULTIPLE SCLEROSIS
     Route: 048
     Dates: start: 20140112
  5. DETROL [Concomitant]
  6. LORAZEPAM [Concomitant]
  7. MACROBID [Concomitant]
  8. CALCIUM-MAGNESIUM-ZINC [Concomitant]
  9. ZYRTEC [Concomitant]

REACTIONS (9)
  - Chromaturia [Unknown]
  - Urinary tract infection [Unknown]
  - Urine odour abnormal [Unknown]
  - Nausea [Unknown]
  - Abdominal pain [Unknown]
  - Flushing [Unknown]
  - Rash pruritic [Unknown]
  - Vomiting [Unknown]
  - Diarrhoea [Unknown]
